FAERS Safety Report 6469444-0 (Version None)
Quarter: 2009Q4

REPORT INFORMATION
  Report Type: 
  Country: None (occurrence: None)
  Receive Date: 20091203
  Receipt Date: 20091123
  Transmission Date: 20100525
  Serious: Yes (Other)
  Sender: FDA-Public Use
  Company Number: DE-ELI_LILLY_AND_COMPANY-DE200911006754

PATIENT
  Age: 42 Year
  Sex: Female

DRUGS (8)
  1. CYMBALTA [Suspect]
     Dosage: 60 MG, UNKNOWN
     Route: 048
     Dates: start: 20090601
  2. FENTANYL [Concomitant]
     Dosage: 25 UG, EVERY HOUR
  3. IBUPROFEN [Concomitant]
     Dosage: 600 MG, UNKNOWN
  4. NOVALGIN [Concomitant]
     Dosage: 500 MG, AS NEEDED
  5. MIRTAZAPINE [Concomitant]
     Dosage: 15 MG, EACH EVENING
  6. CORANGIN [Concomitant]
     Dosage: 1 D/F, UNKNOWN
  7. SIMVASTATIN [Concomitant]
     Dosage: 20 MG, UNKNOWN
  8. ASPIRIN [Concomitant]
     Dosage: 100 MG, UNKNOWN

REACTIONS (1)
  - LOSS OF CONSCIOUSNESS [None]
